FAERS Safety Report 17833249 (Version 1)
Quarter: 2020Q2

REPORT INFORMATION
  Report Type: Spontaneous
  Country: US (occurrence: US)
  Receive Date: 20200527
  Receipt Date: 20200527
  Transmission Date: 20200714
  Serious: Yes (Other)
  Sender: FDA-Public Use
  Company Number: None

PATIENT
  Age: 64 Year
  Sex: Female
  Weight: 89.81 kg

DRUGS (13)
  1. CALCIUM [Concomitant]
     Active Substance: CALCIUM
  2. LIDOCAINE. [Suspect]
     Active Substance: LIDOCAINE
     Indication: ARTHRITIS
     Dosage: ?          OTHER STRENGTH:0.5 CC;QUANTITY:1 DF DOSAGE FORM;OTHER ROUTE:1 INJECTIONS?
     Dates: start: 20190802, end: 20190802
  3. ALPIRAZOLAM [Concomitant]
  4. FLUTICSONE [Concomitant]
  5. ALBUTEROL. [Concomitant]
     Active Substance: ALBUTEROL
  6. IBUPROFEN. [Concomitant]
     Active Substance: IBUPROFEN
  7. CETIRIZINE [Concomitant]
     Active Substance: CETIRIZINE HYDROCHLORIDE
  8. ZYRTEC [Concomitant]
     Active Substance: CETIRIZINE HYDROCHLORIDE
  9. TRIAMCINOLONE ACETONIDE INJECTION SUSPENSION [Suspect]
     Active Substance: TRIAMCINOLONE ACETONIDE
     Dosage: ?          OTHER STRENGTH:0.5 CC;?
  10. CALCITROL [Concomitant]
  11. OXYCODONE [Concomitant]
     Active Substance: OXYCODONE
  12. PEPCID [Concomitant]
     Active Substance: FAMOTIDINE
  13. XANAX [Concomitant]
     Active Substance: ALPRAZOLAM

REACTIONS (6)
  - Dyspnoea [None]
  - Hyperhidrosis [None]
  - Mood altered [None]
  - Blood pressure increased [None]
  - Headache [None]
  - Skin burning sensation [None]

NARRATIVE: CASE EVENT DATE: 20190806
